FAERS Safety Report 16582631 (Version 2)
Quarter: 2019Q3

REPORT INFORMATION
  Report Type: Spontaneous
  Country: DE (occurrence: DE)
  Receive Date: 20190717
  Receipt Date: 20190727
  Transmission Date: 20191004
  Serious: Yes (Hospitalization, Other)
  Sender: FDA-Public Use
  Company Number: DE-ACCORD-138418

PATIENT
  Age: 58 Year
  Sex: Female

DRUGS (4)
  1. PIPAMPERONE/PIPAMPERONE HYDROCHLORIDE [Concomitant]
     Dosage: AS NEEDED
  2. FLUPENTIXOL/FLUPENTIXOL DECANOATE/FLUPENTIXOL DIHYDROCHLORIDE [Concomitant]
     Indication: SCHIZOPHRENIA
  3. CLOZAPINE. [Suspect]
     Active Substance: CLOZAPINE
     Indication: SCHIZOPHRENIA
     Dosage: DOSE WAS REDUCED BY 50MG
  4. VENLAFAXINE/VENLAFAXINE HYDROCHLORIDE [Concomitant]
     Indication: SCHIZOPHRENIA

REACTIONS (3)
  - Lung infiltration [Recovered/Resolved]
  - Respiratory tract infection [Recovered/Resolved]
  - Drug level increased [Recovered/Resolved]
